FAERS Safety Report 11965391 (Version 1)
Quarter: 2016Q1

REPORT INFORMATION
  Report Type: Spontaneous
  Country: None (occurrence: FR)
  Receive Date: 20160127
  Receipt Date: 20160127
  Transmission Date: 20160526
  Serious: Yes (Death)
  Sender: FDA-Public Use
  Company Number: FR-MERCK KGAA-1046954

PATIENT

DRUGS (1)
  1. NOVOTHYROX [Suspect]
     Active Substance: LEVOTHYROXINE SODIUM

REACTIONS (10)
  - Pancreatic necrosis [None]
  - Abdominal discomfort [None]
  - Altered state of consciousness [None]
  - Hyperkinesia [None]
  - Atelectasis [None]
  - Bacterial infection [None]
  - Pancreatitis acute [None]
  - Pleural effusion [None]
  - Acute kidney injury [None]
  - Multiple organ dysfunction syndrome [None]
